FAERS Safety Report 11806444 (Version 1)
Quarter: 2015Q4

REPORT INFORMATION
  Report Type: Spontaneous
  Country: GB (occurrence: GB)
  Receive Date: 20151207
  Receipt Date: 20151207
  Transmission Date: 20160305
  Serious: Yes (Life-Threatening, Other)
  Sender: FDA-Public Use
  Company Number: GB-PFIZER INC-2015413648

PATIENT
  Age: 77 Year
  Sex: Male
  Weight: 100 kg

DRUGS (3)
  1. SILDENAFIL CITRATE. [Suspect]
     Active Substance: SILDENAFIL CITRATE
     Dosage: UNK
     Dates: start: 20151118
  2. ASPIRIN. [Concomitant]
     Active Substance: ASPIRIN
     Dosage: 1 OR 2 TABLETS 3 TIMES A DAY (MAXIMUM FOUR DOSES)
     Dates: start: 20120924
  3. SIMVASTATIN. [Concomitant]
     Active Substance: SIMVASTATIN
     Dosage: 1 DF, 1X/DAY AT NIGHT
     Dates: start: 20120924

REACTIONS (2)
  - Anaphylactic shock [Recovering/Resolving]
  - Vomiting [Recovering/Resolving]

NARRATIVE: CASE EVENT DATE: 20151118
